FAERS Safety Report 21373045 (Version 1)
Quarter: 2022Q3

REPORT INFORMATION
  Report Type: Report from Study
  Country: CO (occurrence: CO)
  Receive Date: 20220924
  Receipt Date: 20220924
  Transmission Date: 20221027
  Serious: Yes (Hospitalization)
  Sender: FDA-Public Use
  Company Number: CO-ABBVIE-4129611

PATIENT
  Sex: Female

DRUGS (1)
  1. ZEMPLAR [Suspect]
     Active Substance: PARICALCITOL
     Indication: Chronic kidney disease
     Dosage: 2 CAPSULE
     Route: 048
     Dates: start: 20220518, end: 20220907

REACTIONS (4)
  - Loss of consciousness [Recovered/Resolved]
  - Influenza [Recovered/Resolved]
  - Haemodialysis [Unknown]
  - Syncope [Unknown]

NARRATIVE: CASE EVENT DATE: 20220101
